FAERS Safety Report 18555013 (Version 4)
Quarter: 2021Q1

REPORT INFORMATION
  Report Type: Spontaneous
  Country: DE (occurrence: DE)
  Receive Date: 20201127
  Receipt Date: 20210211
  Transmission Date: 20210419
  Serious: Yes (Hospitalization, Other)
  Sender: FDA-Public Use
  Company Number: DE-009507513-2010DEU007163

PATIENT
  Age: 23 Year
  Sex: Male
  Weight: 72 kg

DRUGS (2)
  1. PROPECIA [Suspect]
     Active Substance: FINASTERIDE
     Indication: ANDROGENETIC ALOPECIA
     Dosage: 1 MILLIGRAM, QD
     Route: 048
     Dates: start: 20060912, end: 20091028
  2. PROPECIA [Suspect]
     Active Substance: FINASTERIDE
     Indication: ALOPECIA
     Dosage: 1 MILLIGRAM, QD
     Route: 048
     Dates: start: 20100830, end: 201101

REACTIONS (12)
  - Transient ischaemic attack [Unknown]
  - Headache [Unknown]
  - Post 5-alpha-reductase inhibitor syndrome [Not Recovered/Not Resolved]
  - Testicular pain [Not Recovered/Not Resolved]
  - Melanocytic naevus [Unknown]
  - Trichophytosis [Unknown]
  - Hypoaesthesia [Unknown]
  - Nausea [Unknown]
  - Migraine with aura [Unknown]
  - Paraesthesia [Unknown]
  - Hypertension [Unknown]
  - Fungal infection [Unknown]

NARRATIVE: CASE EVENT DATE: 2010
